FAERS Safety Report 6666986-X (Version None)
Quarter: 2010Q1

REPORT INFORMATION
  Report Type: 
  Country: None (occurrence: None)
  Receive Date: 20100331
  Receipt Date: 20100319
  Transmission Date: 20100710
  Serious: Yes (Other)
  Sender: FDA-Public Use
  Company Number: 144-20484-100021187

PATIENT
  Age: 24 Year
  Sex: Female
  Weight: 55 kg

DRUGS (6)
  1. INNOHEP [Suspect]
     Indication: ANTIPHOSPHOLIPID SYNDROME
     Dosage: 10000 IU
     Dates: start: 20061215, end: 20070311
  2. INNOHEP [Suspect]
     Indication: SYSTEMIC LUPUS ERYTHEMATOSUS
     Dosage: 10000 IU
     Dates: start: 20061215, end: 20070311
  3. INNOHEP [Suspect]
     Indication: THROMBOSIS PROPHYLAXIS
     Dosage: 10000 IU
     Dates: start: 20061215, end: 20070311
  4. ASPIRIN [Concomitant]
  5. PREDNISOLONE (PRENISOLONE) [Concomitant]
  6. ACFOL (FOLIC ACID) [Concomitant]

REACTIONS (2)
  - ABORTION SPONTANEOUS [None]
  - DRUG EXPOSURE DURING PREGNANCY [None]
